FAERS Safety Report 7462571-0 (Version None)
Quarter: 2011Q2

REPORT INFORMATION
  Report Type: 
  Country: None (occurrence: None)
  Receive Date: 20110506
  Receipt Date: 20110503
  Transmission Date: 20111010
  Serious: Yes (Hospitalization)
  Sender: FDA-Public Use
  Company Number: US-B.I. PHARMACEUTICALS,INC./RIDGEFIELD-2011-BP-12343BP

PATIENT
  Sex: Female

DRUGS (9)
  1. VITAMIN C [Concomitant]
     Indication: PROPHYLAXIS
  2. SYNTHROID [Concomitant]
     Indication: HYPOTHYROIDISM
  3. ASPIRIN [Concomitant]
     Indication: PROPHYLAXIS
  4. CALCIUM [Concomitant]
     Indication: PROPHYLAXIS
  5. VALTREX [Concomitant]
     Indication: HERPES ZOSTER
  6. SPIRIVA [Suspect]
     Indication: CHRONIC OBSTRUCTIVE PULMONARY DISEASE
     Dosage: 18 MCG
     Route: 055
     Dates: start: 20090101
  7. ALBUTEROL [Concomitant]
     Indication: CHRONIC OBSTRUCTIVE PULMONARY DISEASE
  8. HYDROCHLOROTHIAZIDE [Concomitant]
     Indication: HYPERTENSION
  9. VITAMIN D [Concomitant]
     Indication: PROPHYLAXIS

REACTIONS (3)
  - EYE PAIN [None]
  - DRUG HYPERSENSITIVITY [None]
  - NASOPHARYNGITIS [None]
